FAERS Safety Report 7021540-5 (Version None)
Quarter: 2010Q3

REPORT INFORMATION
  Report Type: 
  Country: None (occurrence: None)
  Receive Date: 20100928
  Receipt Date: 20100914
  Transmission Date: 20110219
  Serious: Yes (Death)
  Sender: FDA-Public Use
  Company Number: HA10-220-AE

PATIENT
  Age: 75 Year
  Sex: Female
  Weight: 73 kg

DRUGS (9)
  1. NAPROXEN [Suspect]
     Indication: RHEUMATOID ARTHRITIS
     Dosage: ORAL
     Route: 048
     Dates: start: 20090213
  2. CELECOXIB [Suspect]
     Indication: OSTEOARTHRITIS
     Dosage: ORAL
     Route: 048
     Dates: start: 20090213
  3. NEXIUM [Concomitant]
  4. ATENOLOL (TRADE NAME NOT PROVIDED) [Concomitant]
  5. HYDROCHLOROTHIAZIDE (TRADE NAME NOT PROVIDED) [Concomitant]
  6. AMLODIPINE (TRADE NAME NOT PROVIDED) [Concomitant]
  7. DICLOFENAC SODIUM [Concomitant]
  8. FERROUS SULFATE [Concomitant]
  9. GLUCOSAMINE SULFATE [Concomitant]

REACTIONS (1)
  - DEATH [None]
